FAERS Safety Report 13584814 (Version 1)
Quarter: 2017Q2

REPORT INFORMATION
  Report Type: Spontaneous
  Country: JP (occurrence: JP)
  Receive Date: 20170526
  Receipt Date: 20170526
  Transmission Date: 20170830
  Serious: Yes (Other)
  Sender: FDA-Public Use
  Company Number: JP-GLENMARK PHARMACEUTICALS-2017GMK027617

PATIENT
  Age: 60 Year
  Sex: Female

DRUGS (8)
  1. OPDIVO [Concomitant]
     Active Substance: NIVOLUMAB
     Dosage: 2 MG/KG, UNK (94 MG/BODY)
     Route: 042
     Dates: start: 20150407
  2. PREDNISOLONE. [Concomitant]
     Active Substance: PREDNISOLONE
     Dosage: 20 MG, QD
     Route: 048
     Dates: start: 20150519
  3. BETAMETHASONE DIPROPIONATE. [Suspect]
     Active Substance: BETAMETHASONE DIPROPIONATE
     Indication: VOGT-KOYANAGI-HARADA SYNDROME
     Dosage: 0.1 %, QID (IN BOTH EYES)
     Route: 065
  4. OPDIVO [Concomitant]
     Active Substance: NIVOLUMAB
     Dosage: 1 MG/KG, UNK (94 MG/BODY, EVERY-3-WEEK)
     Route: 042
     Dates: start: 20150616
  5. ZELBORAF [Concomitant]
     Active Substance: VEMURAFENIB
     Dosage: 1920 MG, QD
     Route: 048
     Dates: start: 20150519, end: 20150520
  6. PREDNISOLONE. [Concomitant]
     Active Substance: PREDNISOLONE
     Indication: PRODUCT USED FOR UNKNOWN INDICATION
     Dosage: 30 MG, QD
     Route: 048
     Dates: start: 20150501, end: 20150513
  7. OPDIVO [Concomitant]
     Active Substance: NIVOLUMAB
     Indication: METASTATIC MALIGNANT MELANOMA
     Dosage: 2 MG/KG, UNK (94 MG/BODY)
     Route: 042
     Dates: start: 20150317
  8. ZELBORAF [Concomitant]
     Active Substance: VEMURAFENIB
     Indication: PRODUCT USED FOR UNKNOWN INDICATION
     Dosage: 1920 MG, QD
     Route: 048
     Dates: start: 20150421, end: 20150430

REACTIONS (1)
  - Intraocular pressure increased [Unknown]

NARRATIVE: CASE EVENT DATE: 201602
